FAERS Safety Report 9135720 (Version 1)
Quarter: 2013Q1

REPORT INFORMATION
  Report Type: Spontaneous
  Country: IT (occurrence: IT)
  Receive Date: 20130304
  Receipt Date: 20130304
  Transmission Date: 20140127
  Serious: Yes (Hospitalization)
  Sender: FDA-Public Use
  Company Number: PHHY2013IT019608

PATIENT
  Sex: Male

DRUGS (3)
  1. METFORMIN [Suspect]
     Dosage: 2550 MG, DAILY
     Route: 048
     Dates: start: 20120113, end: 20130112
  2. HUMALOG [Suspect]
     Dosage: 10 U, DAILY
     Route: 058
     Dates: start: 20120113, end: 20130112
  3. HUMALOG BASAL [Suspect]
     Dosage: 6 U,DAILY
     Route: 058
     Dates: start: 20120113, end: 20130112

REACTIONS (1)
  - Hypoglycaemic coma [Recovering/Resolving]
